FAERS Safety Report 5306129-8 (Version None)
Quarter: 2007Q2

REPORT INFORMATION
  Report Type: 
  Country: None (occurrence: None)
  Receive Date: 20070420
  Receipt Date: 20070420
  Transmission Date: 20071010
  Serious: No
  Sender: FDA-Public Use
  Company Number: None

PATIENT
  Sex: Male
  Weight: 141.52 kg

DRUGS (2)
  1. TAXOTERE [Suspect]
     Dosage: 196 MG
  2. PREDNISONE TAB [Suspect]
     Dosage: 280 MG

REACTIONS (1)
  - NEUTROPHIL COUNT ABNORMAL [None]
